FAERS Safety Report 10625965 (Version 6)
Quarter: 2015Q2

REPORT INFORMATION
  Report Type: Spontaneous
  Country: CA (occurrence: CA)
  Receive Date: 20141204
  Receipt Date: 20150610
  Transmission Date: 20150821
  Serious: Yes (Other)
  Sender: FDA-Public Use
  Company Number: CA-GSKJP-KK201216017GSK1550188SC003

PATIENT
  Age: 48 Year
  Sex: Female
  Weight: 58 kg

DRUGS (8)
  1. PLAQUENIL [Concomitant]
     Active Substance: HYDROXYCHLOROQUINE SULFATE
  2. PREDNISONE. [Concomitant]
     Active Substance: PREDNISONE
  3. BENLYSTA [Suspect]
     Active Substance: BELIMUMAB
     Indication: SYSTEMIC LUPUS ERYTHEMATOSUS
     Dosage: 600 MG, 0, 2, 4 WEEKS AND THEN EVERY 4 WEEKS
     Route: 042
     Dates: start: 20121005
  4. CHANTIX [Suspect]
     Active Substance: VARENICLINE TARTRATE
     Indication: EX-TOBACCO USER
     Route: 065
     Dates: end: 20140324
  5. REACTINE (CETIRIZINE HYDROCHLORIDE) [Concomitant]
     Active Substance: CETIRIZINE HYDROCHLORIDE
     Route: 048
  6. BENLYSTA [Suspect]
     Active Substance: BELIMUMAB
     Dosage: 600 MG, UNK
     Route: 042
  7. BENLYSTA [Suspect]
     Active Substance: BELIMUMAB
     Dosage: 600 MG, Q4 WEEKS
     Dates: start: 20121005
  8. TYLENOL [Concomitant]
     Active Substance: ACETAMINOPHEN
     Route: 048

REACTIONS (12)
  - Osteomyelitis [Recovered/Resolved]
  - Asthenia [Not Recovered/Not Resolved]
  - Somnolence [Recovered/Resolved]
  - Fatigue [Unknown]
  - Dental operation [Unknown]
  - Alopecia [Recovered/Resolved]
  - Insomnia [Unknown]
  - Procedural complication [Recovered/Resolved]
  - Exfoliative rash [Recovered/Resolved]
  - Systemic lupus erythematosus [Unknown]
  - Malaise [Unknown]
  - Drug ineffective [Unknown]

NARRATIVE: CASE EVENT DATE: 2011
